FAERS Safety Report 4504572-8 (Version None)
Quarter: 2004Q4

REPORT INFORMATION
  Report Type: 
  Country: None (occurrence: None)
  Receive Date: 20041116
  Receipt Date: 20041101
  Transmission Date: 20050328
  Serious: Yes (Death, Other)
  Sender: FDA-Public Use
  Company Number: USA-2004-0017477

PATIENT
  Age: 42 Year
  Sex: Male

DRUGS (2)
  1. OXYCONTIN [Suspect]
  2. HEROIN (DIAMORPHINE) [Concomitant]

REACTIONS (4)
  - INJURY [None]
  - POLYSUBSTANCE ABUSE [None]
  - SKULL FRACTURE [None]
  - VICTIM OF HOMICIDE [None]
